FAERS Safety Report 13506390 (Version 1)
Quarter: 2017Q2

REPORT INFORMATION
  Report Type: Spontaneous
  Country: US (occurrence: US)
  Receive Date: 20170502
  Receipt Date: 20170502
  Transmission Date: 20170830
  Serious: No
  Sender: FDA-Public Use
  Company Number: US-ROCHE-1326307

PATIENT
  Sex: Female

DRUGS (1)
  1. AVASTIN [Suspect]
     Active Substance: BEVACIZUMAB
     Indication: PRODUCT USED FOR UNKNOWN INDICATION
     Route: 065

REACTIONS (7)
  - Toothache [Recovered/Resolved]
  - Pain in jaw [Unknown]
  - Urethral pain [Unknown]
  - Proteinuria [Unknown]
  - Sensation of foreign body [Unknown]
  - Pruritus [Unknown]
  - Epistaxis [Unknown]
